FAERS Safety Report 10105592 (Version 1)
Quarter: 2014Q2

REPORT INFORMATION
  Report Type: Report from Study
  Country: US (occurrence: US)
  Receive Date: 20140424
  Receipt Date: 20140424
  Transmission Date: 20141212
  Serious: Yes (Hospitalization)
  Sender: FDA-Public Use
  Company Number: US-ABBVIE-14P-163-1226277-00

PATIENT
  Age: 53 Year
  Sex: Female

DRUGS (36)
  1. HUMIRA [Suspect]
     Indication: CROHN^S DISEASE
     Dates: start: 20130402
  2. HUMIRA [Suspect]
     Dates: start: 20130416
  3. HUMIRA [Suspect]
     Dates: start: 20130430
  4. HUMIRA [Suspect]
     Dates: start: 201401
  5. HUMIRA [Suspect]
     Dates: start: 201401
  6. HUMIRA [Suspect]
     Dates: start: 201401
  7. CYANOCOBALAMINE [Concomitant]
     Indication: VITAMIN B12 DEFICIENCY
  8. IMODIUM [Concomitant]
     Indication: DIARRHOEA
  9. FOLIC ACID [Concomitant]
     Indication: PERNICIOUS ANAEMIA
  10. NORVASC [Concomitant]
     Indication: HYPERTENSION
  11. WELCHOL [Concomitant]
     Indication: GASTRIC DISORDER
     Dosage: WITH MEALS
  12. WELCHOL [Concomitant]
  13. ALBUTEROL [Concomitant]
     Indication: WHEEZING
     Dosage: 108/90 BASE MCG
  14. PERCOCET [Concomitant]
     Indication: PAIN
     Dosage: 5/325 1 TABLET EVERY 6 HOURS AS NEEDED
  15. ATIVAN [Concomitant]
     Indication: ANXIETY
     Dosage: IN THE MORNING
  16. ATIVAN [Concomitant]
     Dosage: AT BEDTIME
  17. PREMARIN [Concomitant]
     Indication: PRODUCT USED FOR UNKNOWN INDICATION
     Dosage: AT NIGHT
     Route: 067
  18. ULTRAM [Concomitant]
     Indication: PAIN
     Dosage: 50 EVERY 4 HOURS
  19. FLONASE [Concomitant]
     Indication: HYPERSENSITIVITY
     Dosage: 1 SPRAY DAILY
     Route: 045
  20. SEROQUEL [Concomitant]
     Indication: SLEEP DISORDER THERAPY
     Dosage: AT BEDTIME
  21. LEXAPRO [Concomitant]
     Indication: DEPRESSION
  22. ACIPHEX [Concomitant]
     Indication: GASTROOESOPHAGEAL REFLUX DISEASE
  23. TRAZODONE [Concomitant]
     Indication: DEPRESSION
     Dosage: AT BEDTIME
  24. FENTANYL [Concomitant]
     Indication: PAIN
  25. BENADRYL [Concomitant]
     Indication: PRURITUS
     Dosage: EVERY 4-6 HOURS
  26. BENADRYL [Concomitant]
     Indication: DRUG THERAPY
  27. ONDANSETRON [Concomitant]
     Indication: NAUSEA
  28. METOPROLOL [Concomitant]
     Indication: HYPERTENSION
  29. ZYRTEC [Concomitant]
     Indication: HYPERSENSITIVITY
  30. BACLOFEN [Concomitant]
     Indication: MUSCLE SPASMS
     Dosage: TID
  31. GABAPENTIN [Concomitant]
     Indication: CROHN^S DISEASE
  32. GABAPENTIN [Concomitant]
     Indication: FIBROMYALGIA
  33. FLAGYL [Concomitant]
     Indication: CROHN^S DISEASE
     Dosage: OFF AND ON
     Dates: start: 2014
  34. ENTOCORT [Concomitant]
     Indication: PRODUCT USED FOR UNKNOWN INDICATION
  35. MAGNESIUM GLUCONATE [Concomitant]
     Indication: BLOOD MAGNESIUM DECREASED
     Route: 048
  36. MAGNESIUM [Concomitant]
     Indication: BLOOD MAGNESIUM DECREASED

REACTIONS (10)
  - Haematochezia [Not Recovered/Not Resolved]
  - Crohn^s disease [Not Recovered/Not Resolved]
  - Diarrhoea [Not Recovered/Not Resolved]
  - Abdominal pain [Not Recovered/Not Resolved]
  - Drug ineffective [Not Recovered/Not Resolved]
  - Drug dose omission [Recovered/Resolved]
  - Diarrhoea [Not Recovered/Not Resolved]
  - Abdominal pain [Not Recovered/Not Resolved]
  - Haematochezia [Not Recovered/Not Resolved]
  - Blood magnesium decreased [Unknown]
